FAERS Safety Report 18020974 (Version 2)
Quarter: 2021Q4

REPORT INFORMATION
  Report Type: Report from Study
  Country: JP (occurrence: JP)
  Receive Date: 20200714
  Receipt Date: 20211129
  Transmission Date: 20220303
  Serious: Yes (Death)
  Sender: FDA-Public Use
  Company Number: JP-PFIZER INC-2018368920

PATIENT
  Age: 52 Year
  Sex: Male
  Weight: 67 kg

DRUGS (6)
  1. BESPONSA [Suspect]
     Active Substance: INOTUZUMAB OZOGAMICIN
     Indication: Acute lymphocytic leukaemia
     Dosage: 0.8 MG/M2, DAILY
     Route: 041
     Dates: start: 20180905, end: 20180905
  2. BESPONSA [Suspect]
     Active Substance: INOTUZUMAB OZOGAMICIN
     Dosage: 0.8 MG/M2, DAILY
     Dates: start: 20180912, end: 20180912
  3. BESPONSA [Suspect]
     Active Substance: INOTUZUMAB OZOGAMICIN
     Dosage: 0.8 MG/M2, DAILY
     Dates: start: 20180919, end: 20180919
  4. FLUDARABINE [Concomitant]
     Active Substance: FLUDARABINE PHOSPHATE
     Indication: Acute lymphocytic leukaemia recurrent
  5. BUSULFEX [Concomitant]
     Active Substance: BUSULFAN
     Indication: Acute lymphocytic leukaemia recurrent
  6. ALKERAN [Concomitant]
     Active Substance: MELPHALAN
     Indication: Acute lymphocytic leukaemia recurrent

REACTIONS (2)
  - Pancytopenia [Fatal]
  - Hepatic enzyme increased [Recovered/Resolved]

NARRATIVE: CASE EVENT DATE: 20180907
